FAERS Safety Report 6232783-2 (Version None)
Quarter: 2009Q2

REPORT INFORMATION
  Report Type: 
  Country: None (occurrence: None)
  Receive Date: 20090612
  Receipt Date: 20090610
  Transmission Date: 20091009
  Serious: Yes (Other)
  Sender: FDA-Public Use
  Company Number: SP02425

PATIENT
  Age: 64 Year
  Sex: Male

DRUGS (4)
  1. OSMOPREP [Suspect]
     Indication: COLONOSCOPY
     Dosage: (30 TABLETS), ORAL
     Route: 048
     Dates: start: 20081002, end: 20081003
  2. AVALIDE [Concomitant]
  3. AVAPRO [Concomitant]
  4. VITAMINS [Concomitant]

REACTIONS (7)
  - ASTHENIA [None]
  - COLD SWEAT [None]
  - EATING DISORDER [None]
  - NAUSEA [None]
  - PALPITATIONS [None]
  - PRESYNCOPE [None]
  - RENAL IMPAIRMENT [None]
